FAERS Safety Report 13607679 (Version 3)
Quarter: 2017Q3

REPORT INFORMATION
  Report Type: Report from Study
  Country: US (occurrence: US)
  Receive Date: 20170602
  Receipt Date: 20170802
  Transmission Date: 20171127
  Serious: Yes (Other)
  Sender: FDA-Public Use
  Company Number: PHEH2017US016698

PATIENT
  Age: 30 Year
  Sex: Female

DRUGS (1)
  1. GILENYA [Suspect]
     Active Substance: FINGOLIMOD HYDROCHLORIDE
     Indication: RELAPSING-REMITTING MULTIPLE SCLEROSIS
     Dosage: 0.5 MG, QD
     Route: 048
     Dates: start: 20170519, end: 20170701

REACTIONS (8)
  - Lethargy [Recovering/Resolving]
  - Fungal infection [Recovering/Resolving]
  - Arthropod bite [Unknown]
  - Vomiting [Recovering/Resolving]
  - Lyme disease [Unknown]
  - Somnolence [Recovering/Resolving]
  - Infection [Unknown]
  - Nausea [Recovering/Resolving]

NARRATIVE: CASE EVENT DATE: 20170630
